FAERS Safety Report 6475668-9 (Version None)
Quarter: 2009Q4

REPORT INFORMATION
  Report Type: 
  Country: None (occurrence: None)
  Receive Date: 20091204
  Receipt Date: 20090317
  Transmission Date: 20100525
  Serious: No
  Sender: FDA-Public Use
  Company Number: US-AMGEN-KDL326792

PATIENT
  Sex: Female

DRUGS (2)
  1. ENBREL [Suspect]
     Indication: PSORIASIS
     Route: 058
     Dates: start: 20050721
  2. BUPROPION HCL [Concomitant]

REACTIONS (4)
  - ADVERSE DRUG REACTION [None]
  - INJECTION SITE PAIN [None]
  - PSORIASIS [None]
  - STRESS [None]
